FAERS Safety Report 15712379 (Version 5)
Quarter: 2020Q2

REPORT INFORMATION
  Report Type: Report from Study
  Country: None (occurrence: CA)
  Receive Date: 20181212
  Receipt Date: 20200617
  Transmission Date: 20200713
  Serious: Yes (Hospitalization, Other)
  Sender: FDA-Public Use
  Company Number: CA-ABBVIE-18K-028-2551327-00

PATIENT
  Age: 54 Year
  Sex: Male

DRUGS (4)
  1. HUMIRA [Suspect]
     Active Substance: ADALIMUMAB
     Route: 058
  2. HUMIRA [Suspect]
     Active Substance: ADALIMUMAB
     Indication: CROHN^S DISEASE
     Route: 058
     Dates: start: 20141210
  3. HUMIRA [Suspect]
     Active Substance: ADALIMUMAB
     Route: 058
  4. HUMIRA [Suspect]
     Active Substance: ADALIMUMAB
     Route: 058

REACTIONS (42)
  - Medical device site erosion [Not Recovered/Not Resolved]
  - Ear infection [Not Recovered/Not Resolved]
  - Intestinal resection [Unknown]
  - Eye movement disorder [Unknown]
  - Incorrect product administration duration [Unknown]
  - Stoma site haemorrhage [Unknown]
  - Abdominal adhesions [Unknown]
  - Fungal infection [Not Recovered/Not Resolved]
  - Staphylococcal infection [Not Recovered/Not Resolved]
  - Hypophagia [Unknown]
  - Fistula discharge [Not Recovered/Not Resolved]
  - Gastrointestinal pain [Not Recovered/Not Resolved]
  - Flatulence [Unknown]
  - Abdominal distension [Unknown]
  - Gastrointestinal stoma complication [Not Recovered/Not Resolved]
  - Scar [Not Recovered/Not Resolved]
  - Gastrointestinal stoma complication [Unknown]
  - Impaired healing [Unknown]
  - Animal scratch [Unknown]
  - Wound complication [Not Recovered/Not Resolved]
  - Wound haemorrhage [Not Recovered/Not Resolved]
  - Stoma site infection [Recovered/Resolved]
  - Aphthous ulcer [Unknown]
  - Skin erosion [Not Recovered/Not Resolved]
  - Abdominal pain upper [Unknown]
  - Musculoskeletal pain [Unknown]
  - Pain [Not Recovered/Not Resolved]
  - Skin discolouration [Unknown]
  - Ostomy bag placement [Unknown]
  - Gastrointestinal injury [Unknown]
  - Stoma site pain [Not Recovered/Not Resolved]
  - Nausea [Unknown]
  - Abdominal pain [Unknown]
  - Stress fracture [Unknown]
  - Arthropathy [Unknown]
  - Feeling abnormal [Unknown]
  - Infected fistula [Not Recovered/Not Resolved]
  - Adhesion [Not Recovered/Not Resolved]
  - Stoma site erythema [Not Recovered/Not Resolved]
  - Rash [Unknown]
  - Injection site pain [Not Recovered/Not Resolved]
  - Malnutrition [Unknown]

NARRATIVE: CASE EVENT DATE: 2015
